FAERS Safety Report 18324096 (Version 1)
Quarter: 2020Q3

REPORT INFORMATION
  Report Type: Spontaneous
  Country: US (occurrence: US)
  Receive Date: 20200929
  Receipt Date: 20200929
  Transmission Date: 20201103
  Serious: Yes (Hospitalization)
  Sender: FDA-Public Use
  Company Number: None

PATIENT
  Age: 78 Year
  Sex: Female
  Weight: 87.32 kg

DRUGS (1)
  1. YESCARTA [Suspect]
     Active Substance: AXICABTAGENE CILOLEUCEL
     Indication: LYMPHOMA
     Dates: start: 20200914, end: 20200914

REACTIONS (6)
  - Cytokine release syndrome [None]
  - Oxygen saturation decreased [None]
  - Neurotoxicity [None]
  - Seizure [None]
  - Lymphocyte adoptive therapy [None]
  - Confusional state [None]

NARRATIVE: CASE EVENT DATE: 20200918
